FAERS Safety Report 17826267 (Version 2)
Quarter: 2020Q4

REPORT INFORMATION
  Report Type: Report from Study
  Country: US (occurrence: US)
  Receive Date: 20200526
  Receipt Date: 20201120
  Transmission Date: 20210113
  Serious: Yes (Hospitalization)
  Sender: FDA-Public Use
  Company Number: US-SA-2020SA111342

PATIENT

DRUGS (36)
  1. ENOXAPARIN [Concomitant]
     Active Substance: ENOXAPARIN
     Dosage: 60 MG, BID
     Route: 058
     Dates: start: 20200407
  2. ENOXAPARIN [Concomitant]
     Active Substance: ENOXAPARIN
     Indication: THROMBOSIS PROPHYLAXIS
  3. HYDROXYCHLOROQUINE [Concomitant]
     Active Substance: HYDROXYCHLOROQUINE
     Indication: COVID-19
     Dosage: 400 MG, BID
     Route: 048
     Dates: start: 20200328, end: 20200328
  4. LANTUS [Concomitant]
     Active Substance: INSULIN GLARGINE
     Indication: DIABETES MELLITUS
  5. METHYLPREDNISOLONE. [Concomitant]
     Active Substance: METHYLPREDNISOLONE
     Indication: DYSPNOEA
  6. OXYMETAZOLINE [Concomitant]
     Active Substance: OXYMETAZOLINE
     Indication: VASOCONSTRICTION
     Dosage: 2 DF (SPRAY), BID
     Route: 045
     Dates: start: 20200409
  7. ATORVASTATIN [Concomitant]
     Active Substance: ATORVASTATIN
     Dosage: 10 MG, QD
     Route: 048
     Dates: start: 20200329
  8. METHYLPREDNISOLONE. [Concomitant]
     Active Substance: METHYLPREDNISOLONE
     Indication: DYSPNOEA
     Dosage: 40 MG, BID
     Route: 042
     Dates: start: 20200401, end: 20200407
  9. FUROSEMIDE. [Concomitant]
     Active Substance: FUROSEMIDE
     Dosage: 40 MG, 1X (SINGLE)
     Route: 042
     Dates: start: 20200417, end: 20200417
  10. AMLODIPINE [Concomitant]
     Active Substance: AMLODIPINE BESYLATE
     Indication: HYPERTENSION
     Dosage: 5 MG, QD
     Route: 048
     Dates: start: 20200329
  11. ATORVASTATIN [Concomitant]
     Active Substance: ATORVASTATIN
     Indication: BLOOD CHOLESTEROL INCREASED
  12. ENOXAPARIN [Concomitant]
     Active Substance: ENOXAPARIN
     Indication: THROMBOSIS PROPHYLAXIS
     Dosage: 40 MG, QD
     Route: 048
     Dates: start: 20200329, end: 20200407
  13. LISPRO INSULIN [Concomitant]
     Active Substance: INSULIN LISPRO
     Indication: DIABETES MELLITUS
  14. ANAKINRA [Concomitant]
     Active Substance: ANAKINRA
     Indication: IMMUNOSUPPRESSANT DRUG THERAPY
     Dosage: 100 MG, UNK
     Route: 058
     Dates: start: 20200403
  15. AMOXICILLIN. [Concomitant]
     Active Substance: AMOXICILLIN
     Indication: ANTIBIOTIC THERAPY
     Dosage: 875 MG, BID
     Route: 048
     Dates: start: 20200409
  16. HEPARIN [Concomitant]
     Active Substance: HEPARIN SODIUM
     Indication: THROMBOSIS PROPHYLAXIS
     Dosage: 5000 IU, 1X (SINGLE)
     Route: 058
     Dates: start: 20200417, end: 20200417
  17. LOSARTAN. [Concomitant]
     Active Substance: LOSARTAN
     Indication: HYPERTENSION
     Dosage: 50 MG, QD
     Route: 048
     Dates: start: 20200329
  18. SOLU-MEDROL [Concomitant]
     Active Substance: METHYLPREDNISOLONE SODIUM SUCCINATE
     Indication: DYSPNOEA
     Dosage: 60 MG, 1X (SINGLE)
     Route: 042
     Dates: start: 20200330, end: 20200330
  19. SOLU-MEDROL [Concomitant]
     Active Substance: METHYLPREDNISOLONE SODIUM SUCCINATE
     Indication: DYSPNOEA
  20. ASPIRIN [ACETYLSALICYLIC ACID] [Concomitant]
     Active Substance: ASPIRIN
     Indication: INFLAMMATION
     Dosage: 81 MG, QD
     Route: 048
     Dates: start: 20200405
  21. HEPARIN [Concomitant]
     Active Substance: HEPARIN SODIUM
     Indication: THROMBOSIS PROPHYLAXIS
  22. FAMOTIDINE. [Concomitant]
     Active Substance: FAMOTIDINE
     Indication: REFLUX GASTRITIS
     Dosage: 20 MG, BID
     Route: 042
     Dates: start: 20200405
  23. SARILUMAB [Suspect]
     Active Substance: SARILUMAB
     Indication: COVID-19
     Dosage: 400 MG, SINGLE
     Route: 042
     Dates: start: 20200329, end: 20200329
  24. AZITHROMYCIN ANHYDROUS. [Concomitant]
     Active Substance: AZITHROMYCIN ANHYDROUS
     Indication: INFECTION
     Dosage: 250 MG, QD
     Route: 048
     Dates: start: 20200329
  25. LOSARTAN. [Concomitant]
     Active Substance: LOSARTAN
     Indication: HYPERTENSION
  26. AMLODIPINE [Concomitant]
     Active Substance: AMLODIPINE BESYLATE
     Dosage: 5 MG, QD
     Route: 048
     Dates: start: 20200329
  27. HYDROXYCHLOROQUINE [Concomitant]
     Active Substance: HYDROXYCHLOROQUINE
     Dosage: 200 MG, BID
     Route: 048
     Dates: start: 20200329, end: 20200401
  28. LANTUS [Concomitant]
     Active Substance: INSULIN GLARGINE
     Indication: DIABETES MELLITUS
     Dosage: 18 IU, HS
     Route: 058
     Dates: start: 20200329
  29. ACETAMINOPHENE [Concomitant]
     Active Substance: ACETAMINOPHEN
     Indication: PYREXIA
     Dosage: 60 MG, AS NECESSARY
     Route: 048
     Dates: start: 20200329
  30. ACETAMINOPHENE [Concomitant]
     Active Substance: ACETAMINOPHEN
     Indication: PYREXIA
  31. HEPARIN [Concomitant]
     Active Substance: HEPARIN SODIUM
     Indication: THROMBOSIS PROPHYLAXIS
  32. BENZONATATE. [Concomitant]
     Active Substance: BENZONATATE
     Indication: COUGH
     Dosage: UNK, MG TID
     Route: 048
     Dates: start: 20200329
  33. ENOXAPARIN [Concomitant]
     Active Substance: ENOXAPARIN
     Indication: THROMBOSIS PROPHYLAXIS
  34. LISPRO INSULIN [Concomitant]
     Active Substance: INSULIN LISPRO
     Indication: DIABETES MELLITUS
     Dosage: 1 DF, TID (SLIDING SCALE), BEFORE MEALS AND HS)
     Route: 058
     Dates: start: 20200329
  35. ALBUTEROL [SALBUTAMOL] [Concomitant]
     Active Substance: ALBUTEROL
     Indication: DYSPNOEA
     Dosage: 2 DF (PUFF), QID
     Route: 048
     Dates: start: 20200129
  36. FUROSEMIDE. [Concomitant]
     Active Substance: FUROSEMIDE
     Indication: DIURETIC THERAPY
     Dosage: 40 MG, 1X (SINGLE)
     Route: 042
     Dates: start: 20020401, end: 20200401

REACTIONS (1)
  - Alanine aminotransferase increased [Not Recovered/Not Resolved]

NARRATIVE: CASE EVENT DATE: 20200417
